FAERS Safety Report 5286985-2 (Version None)
Quarter: 2007Q1

REPORT INFORMATION
  Report Type: 
  Country: None (occurrence: None)
  Receive Date: 20070329
  Receipt Date: 20070314
  Transmission Date: 20070707
  Serious: Yes (Death, Hospitalization)
  Sender: FDA-Public Use
  Company Number: 2006002371

PATIENT
  Age: 62 Year
  Sex: Male

DRUGS (4)
  1. TARCEVA [Suspect]
     Indication: NON-SMALL CELL LUNG CANCER
     Dosage: 150 MG (QD), ORAL
     Route: 048
     Dates: start: 20050716, end: 20061207
  2. PREDNISONE [Concomitant]
  3. SILOMAT (CLOBUTINOL HYDROCHLORIDE) [Concomitant]
  4. POTASSIUM CHLORIDE [Concomitant]

REACTIONS (6)
  - ACUTE RESPIRATORY DISTRESS SYNDROME [None]
  - AREFLEXIA [None]
  - INTERSTITIAL LUNG DISEASE [None]
  - MUSCLE SPASMS [None]
  - PARAESTHESIA [None]
  - PHYSICAL EXAMINATION ABNORMAL [None]
